FAERS Safety Report 5291514-3 (Version None)
Quarter: 2007Q2

REPORT INFORMATION
  Report Type: 
  Country: None (occurrence: None)
  Receive Date: 20070403
  Receipt Date: 20070105
  Transmission Date: 20071010
  Serious: Yes (Hospitalization)
  Sender: FDA-Public Use
  Company Number: A-US2006-14354

PATIENT
  Age: 52 Year
  Sex: Female
  Weight: 88 kg

DRUGS (10)
  1. VENTAVIS [Suspect]
     Indication: PULMONARY HYPERTENSION
     Dosage: 5 UG, 4 X 1/D
     Dates: start: 20060104, end: 20061227
  2. VENTAVIS [Suspect]
     Indication: PULMONARY HYPERTENSION
     Dosage: 5 UG, 4 X 1/D
     Dates: start: 20070112
  3. TRACLEER [Concomitant]
  4. DIGOXIN [Concomitant]
  5. CARDIZEM [Concomitant]
  6. FUROSEMIDE [Concomitant]
  7. PREDNISONE TAB [Concomitant]
  8. FOSAMAX [Concomitant]
  9. OXYGEN (OXYGEN) [Concomitant]
  10. WARFARIN SODIUM [Concomitant]

REACTIONS (9)
  - ACUTE RESPIRATORY FAILURE [None]
  - AORTIC STENOSIS [None]
  - CONDITION AGGRAVATED [None]
  - HEADACHE [None]
  - OXYGEN CONSUMPTION INCREASED [None]
  - PNEUMONIA [None]
  - POST PROCEDURAL COMPLICATION [None]
  - PULMONARY FIBROSIS [None]
  - PULMONARY HYPERTENSION [None]
